FAERS Safety Report 18068670 (Version 1)
Quarter: 2020Q3

REPORT INFORMATION
  Report Type: Other
  Country: US (occurrence: US)
  Receive Date: 20200724
  Receipt Date: 20200724
  Transmission Date: 20201103
  Serious: Yes (Life-Threatening, Hospitalization, Other)
  Sender: FDA-Public Use
  Company Number: US-C B FLEET CO INC-202007-US-002579

PATIENT
  Age: 67 Year
  Sex: Female

DRUGS (1)
  1. CARBONYL IRON [Suspect]
     Active Substance: IRON
     Indication: BLOOD IRON
     Dosage: DOSAGE UNKNOWN
     Route: 048

REACTIONS (3)
  - Haemoptysis [Unknown]
  - Pulmonary necrosis [Unknown]
  - Foreign body aspiration [Unknown]
